FAERS Safety Report 23661255 (Version 1)
Quarter: 2024Q1

REPORT INFORMATION
  Report Type: Other
  Country: GB (occurrence: GB)
  Receive Date: 20240322
  Receipt Date: 20240322
  Transmission Date: 20240410
  Serious: Yes (Disabling)
  Sender: FDA-Public Use
  Company Number: GB-AMNEAL PHARMACEUTICALS-2024-AMRX-00918

PATIENT

DRUGS (7)
  1. ONGENTYS [Suspect]
     Active Substance: OPICAPONE
     Indication: Ill-defined disorder
     Dosage: UNK
     Route: 065
     Dates: start: 20240307
  2. BENSERAZIDE HYDROCHLORIDE\LEVODOPA [Concomitant]
     Active Substance: BENSERAZIDE HYDROCHLORIDE\LEVODOPA
     Indication: Ill-defined disorder
     Dosage: CAPSULE (2 CAPSULES AT 7AM, 4PM, 7PM, 9PM AND 3 CAP)
     Route: 065
     Dates: start: 20231002
  3. POLYETHYLENE GLYCOL 3350\POTASSIUM CHLORIDE\SODIUM BICARBONATE\SODIUM [Concomitant]
     Active Substance: POLYETHYLENE GLYCOL 3350\POTASSIUM CHLORIDE\SODIUM BICARBONATE\SODIUM CHLORIDE
     Indication: Ill-defined disorder
     Dosage: ONE OR TWO SACHETS DISSOLVED IN WATER
     Route: 065
     Dates: start: 20240119
  4. DIAZEPAM [Concomitant]
     Active Substance: DIAZEPAM
     Indication: Ill-defined disorder
     Dosage: ONE TABLET TAKEN UP TO THREE TIMES A DAY
     Route: 065
     Dates: start: 20240119, end: 20240129
  5. IBUPROFEN [Concomitant]
     Active Substance: IBUPROFEN
     Indication: Ill-defined disorder
     Dosage: 1 DOSAGE FORM, AS NEEDED (ONE TABLE TO BE TAKEN THREE TIMES A DAY AS NEEDED)
     Route: 065
     Dates: start: 20240119, end: 20240216
  6. OMEPRAZOLE [Concomitant]
     Active Substance: OMEPRAZOLE
     Indication: Ill-defined disorder
     Dosage: 1 DOSAGE FORM, DAILY
     Route: 065
     Dates: start: 20240119, end: 20240216
  7. CARBIDOPA\ENTACAPONE\LEVODOPA [Concomitant]
     Active Substance: CARBIDOPA\ENTACAPONE\LEVODOPA
     Indication: Ill-defined disorder
     Dosage: 1 DOSAGE FORM, 4X / DAY (ONE QDS AS DISCUSSED, UNDER NEUROLOGIST)
     Route: 065
     Dates: start: 20240110, end: 20240125

REACTIONS (1)
  - Swelling face [Recovered/Resolved]

NARRATIVE: CASE EVENT DATE: 20240307
